FAERS Safety Report 18922869 (Version 2)
Quarter: 2021Q1

REPORT INFORMATION
  Report Type: Report from Study
  Country: US (occurrence: US)
  Receive Date: 20210222
  Receipt Date: 20210223
  Transmission Date: 20210420
  Serious: Yes (Other)
  Sender: FDA-Public Use
  Company Number: US-MYLANLABS-2019M1107243

PATIENT
  Age: 28 Year
  Sex: Female
  Weight: 60 kg

DRUGS (2)
  1. GLATIRAMER ACETATE INJECTION [Suspect]
     Active Substance: GLATIRAMER ACETATE
     Indication: RELAPSING-REMITTING MULTIPLE SCLEROSIS
     Dosage: 40 MILLIGRAM, 3XW
     Route: 058
     Dates: start: 201910
  2. GLATIRAMER ACETATE INJECTION [Suspect]
     Active Substance: GLATIRAMER ACETATE
     Dosage: 40 MILLIGRAM, 3XW
     Route: 058

REACTIONS (11)
  - Dyspnoea [Recovered/Resolved]
  - Injection site mass [Recovered/Resolved]
  - Chest discomfort [Recovered/Resolved]
  - Injection site bruising [Unknown]
  - Panic attack [Recovered/Resolved]
  - Injection site haemorrhage [Recovered/Resolved]
  - Injection site reaction [Unknown]
  - Product dose omission in error [Unknown]
  - Tunnel vision [Recovered/Resolved]
  - Injection site extravasation [Unknown]
  - Anxiety [Not Recovered/Not Resolved]

NARRATIVE: CASE EVENT DATE: 20191223
